FAERS Safety Report 7747726-X (Version None)
Quarter: 2011Q3

REPORT INFORMATION
  Report Type: 
  Country: None (occurrence: None)
  Receive Date: 20110913
  Receipt Date: 20110902
  Transmission Date: 20111222
  Serious: Yes (Hospitalization)
  Sender: FDA-Public Use
  Company Number: FR-VERTEX PHARMACEUTICALS INC.-AE-2011-001395

PATIENT
  Sex: Male
  Weight: 60 kg

DRUGS (4)
  1. PEGASYS [Concomitant]
     Indication: HEPATITIS C
     Route: 058
     Dates: start: 20110818
  2. PEGASYS [Concomitant]
     Route: 058
     Dates: start: 20110818
  3. VX-950 [Suspect]
     Indication: HEPATITIS C
     Route: 048
     Dates: end: 20110601
  4. COPEGUS [Concomitant]
     Indication: HEPATITIS C
     Route: 048

REACTIONS (1)
  - STAPHYLOCOCCAL SEPSIS [None]
